FAERS Safety Report 18634285 (Version 1)
Quarter: 2020Q4

REPORT INFORMATION
  Report Type: Spontaneous
  Country: BR (occurrence: BR)
  Receive Date: 20201218
  Receipt Date: 20201218
  Transmission Date: 20210114
  Serious: Yes (Other)
  Sender: FDA-Public Use
  Company Number: NVSC2020BR334005

PATIENT
  Sex: Male
  Weight: 80 kg

DRUGS (1)
  1. DIOVAN HCT [Suspect]
     Active Substance: HYDROCHLOROTHIAZIDE\VALSARTAN
     Indication: HYPERTENSION
     Dosage: 1 DF, QD (IN THE MORNING STARTED APPROX. 15 YEARS AGO)
     Route: 048

REACTIONS (3)
  - Rheumatoid arthritis [Unknown]
  - Diabetes mellitus [Unknown]
  - Hypertension [Unknown]
